FAERS Safety Report 7748908-3 (Version None)
Quarter: 2011Q3

REPORT INFORMATION
  Report Type: 
  Country: None (occurrence: None)
  Receive Date: 20110913
  Receipt Date: 20110913
  Transmission Date: 20111222
  Serious: Yes (Hospitalization)
  Sender: FDA-Public Use
  Company Number: None

PATIENT
  Age: 56 Year
  Sex: Female
  Weight: 74.2 kg

DRUGS (3)
  1. RISPERIDONE [Suspect]
     Dosage: 2 MG EVERY DAY PO
     Route: 048
     Dates: start: 20080605, end: 20080728
  2. PIMOZIDE [Suspect]
     Indication: SCHIZOPHRENIA, PARANOID TYPE
     Dosage: 2 MG BID PO
     Route: 048
     Dates: start: 20070824, end: 20080922
  3. PIMOZIDE [Suspect]
     Indication: DEPRESSION
     Dosage: 2 MG BID PO
     Route: 048
     Dates: start: 20070824, end: 20080922

REACTIONS (2)
  - ELECTROCARDIOGRAM QT PROLONGED [None]
  - HYPOTENSION [None]
